FAERS Safety Report 8535071-4 (Version None)
Quarter: 2012Q3

REPORT INFORMATION
  Report Type: 
  Country: None (occurrence: None)
  Receive Date: 20120724
  Receipt Date: 20120710
  Transmission Date: 20120928
  Serious: Yes (Other)
  Sender: FDA-Public Use
  Company Number: BR-PFIZER INC-2011314690

PATIENT
  Age: 57 Year
  Sex: Male

DRUGS (5)
  1. BENICAR HCT [Suspect]
     Indication: HYPERTENSION
     Dosage: 40 MG/ 12.5 MG, ONCE A DAY
     Route: 048
     Dates: start: 20110101, end: 20120201
  2. AMOXICILLIN [Suspect]
     Indication: DENTAL IMPLANTATION
     Dosage: 500 MG, UNK
     Route: 048
     Dates: start: 20111101
  3. BETAMETHASONE BENZOATE [Suspect]
     Indication: DENTAL IMPLANTATION
     Dosage: 2 MG, UNK
     Route: 048
     Dates: start: 20111101
  4. AMLODIPINE [Concomitant]
     Dosage: 5 MG, UNK
     Dates: start: 20111001
  5. CELECOXIB [Suspect]
     Indication: DENTAL IMPLANTATION
     Dosage: UNK
     Route: 048
     Dates: start: 20111101

REACTIONS (4)
  - DENTAL IMPLANTATION [None]
  - BLOOD PRESSURE INCREASED [None]
  - ANAL FISSURE [None]
  - DRUG INEFFECTIVE [None]
